FAERS Safety Report 23321820 (Version 2)
Quarter: 2024Q1

REPORT INFORMATION
  Report Type: Report from Study
  Country: CN (occurrence: CN)
  Receive Date: 20231220
  Receipt Date: 20240117
  Transmission Date: 20240410
  Serious: No
  Sender: FDA-Public Use
  Company Number: CN-PFIZER INC-PV202300204005

PATIENT
  Age: 84 Year
  Sex: Male

DRUGS (7)
  1. NIRMATRELVIR\RITONAVIR [Suspect]
     Active Substance: NIRMATRELVIR\RITONAVIR
     Indication: COVID-19
     Dosage: [NIRMATRELVIR 300 MG/RITONAVIR 100 MG], Q12H
     Route: 048
     Dates: start: 20220425, end: 20220501
  2. DOXAZOSIN MESYLATE [Concomitant]
     Active Substance: DOXAZOSIN MESYLATE
     Dosage: EXTENDED RELEASE TABLETS
     Route: 048
     Dates: start: 20220423
  3. FINASTERIDE [Concomitant]
     Active Substance: FINASTERIDE
     Dosage: UNK
     Route: 048
     Dates: start: 20220423
  4. LEVAMLODIPINE BESYLATE [Concomitant]
     Active Substance: LEVAMLODIPINE BESYLATE
     Dosage: UNK
     Route: 048
     Dates: start: 20220423
  5. AMMONIUM CHLORIDE/GLYCYRRHIZA GLABRA [Concomitant]
     Indication: COVID-19 treatment
     Dosage: UNK
     Route: 048
     Dates: start: 20220425
  6. AMLODIPINE BESYLATE [Concomitant]
     Active Substance: AMLODIPINE BESYLATE
     Dosage: UNK
     Route: 048
     Dates: start: 20220430
  7. ASPIRIN [Concomitant]
     Active Substance: ASPIRIN
     Dosage: ASIPILINCHANGRONGPIAN
     Route: 048
     Dates: start: 20220430

REACTIONS (1)
  - Overdose [Unknown]
